FAERS Safety Report 20085689 (Version 1)
Quarter: 2021Q4

REPORT INFORMATION
  Report Type: Spontaneous
  Country: DE (occurrence: DE)
  Receive Date: 20211118
  Receipt Date: 20211118
  Transmission Date: 20220303
  Serious: Yes (Hospitalization)
  Sender: FDA-Public Use
  Company Number: DE-ADRED-07143-01

PATIENT
  Age: 72 Year
  Sex: Male
  Weight: 100 kg

DRUGS (11)
  1. ASPIRIN [Suspect]
     Active Substance: ASPIRIN
     Indication: Product used for unknown indication
     Dosage: 100 MILLIGRAM, QD, 100 MG, 1-0-0-0, TABLETTEN
     Route: 048
  2. DICLOFENAC [Suspect]
     Active Substance: DICLOFENAC
     Indication: Product used for unknown indication
     Dosage: 75 MILLIGRAM, BID, 75 MG, 1-0-1-0, TABLETTEN
     Route: 048
  3. METOPROLOL [Concomitant]
     Active Substance: METOPROLOL
     Dosage: 50 MILLIGRAM, BID, 50 MG, 2-0-1-0, RETARD-TABLETTEN
     Route: 048
  4. MIRTAZAPINE [Concomitant]
     Active Substance: MIRTAZAPINE
     Dosage: 15 MILLIGRAM, QD, 15 MG, 0-0-1-0, TABLETTEN
     Route: 048
  5. BEVESPI AEROSPHERE [Concomitant]
     Active Substance: FORMOTEROL FUMARATE\GLYCOPYRROLATE
     Dosage: UNK UNK, BID, 1-0-1-0, DOSIERAEROSOL
     Route: 055
  6. PANTOPRAZOLE [Concomitant]
     Active Substance: PANTOPRAZOLE
     Dosage: 20 MILLIGRAM, QD, 20 MG, 1-0-0-0, TABLETTEN
     Route: 048
  7. VALSARTAN [Concomitant]
     Active Substance: VALSARTAN
     Dosage: 160 MILLIGRAM, BID, 160 MG, 1-0-0.5-0, TABLETTEN
     Route: 048
  8. ALBUTEROL [Concomitant]
     Active Substance: ALBUTEROL
     Dosage: UNK UNK, PRN, BEI BEDARF, DOSIERAEROSOL
     Route: 055
  9. BACLOFEN [Concomitant]
     Active Substance: BACLOFEN
     Dosage: UNK UNK, BID, 10 MG, 0.5-0-0-0.5, TABLETTEN
     Route: 048
  10. CARBAMAZEPINE [Concomitant]
     Active Substance: CARBAMAZEPINE
     Dosage: 200 MILLIGRAM, BID, 200 MG, 1-0-2-0, RETARD-TABLETTEN
     Route: 048
  11. SIMVASTATIN [Concomitant]
     Active Substance: SIMVASTATIN
     Dosage: 40 MILLIGRAM, QD, 40 MG, 0-0-0.5-0, TABLETTEN
     Route: 048

REACTIONS (8)
  - Muscle spasms [Recovering/Resolving]
  - Asthenia [Recovering/Resolving]
  - Fatigue [Recovering/Resolving]
  - Iron deficiency anaemia [Recovering/Resolving]
  - Duodenal ulcer [Recovering/Resolving]
  - Gastritis erosive [Recovering/Resolving]
  - Dyspnoea exertional [Recovering/Resolving]
  - Product prescribing error [Unknown]
